FAERS Safety Report 22168188 (Version 1)
Quarter: 2023Q2

REPORT INFORMATION
  Report Type: Spontaneous
  Country: US (occurrence: US)
  Receive Date: 20230403
  Receipt Date: 20230403
  Transmission Date: 20230721
  Serious: Yes (Other)
  Sender: FDA-Public Use
  Company Number: US-002147023-NVSC2023US076444

PATIENT
  Age: 81 Year
  Sex: Female

DRUGS (3)
  1. BEOVU [Suspect]
     Active Substance: BROLUCIZUMAB-DBLL
     Indication: Age-related macular degeneration
     Dosage: UNK (LOADING DOSE, LEFT EYE, TIME PERIOD OF 28)
     Route: 065
     Dates: start: 20191230
  2. BEOVU [Suspect]
     Active Substance: BROLUCIZUMAB-DBLL
     Dosage: UNK (LOADING DOSE, LEFT EYE, OS, TIME PERIOD OF 30)
     Route: 065
     Dates: start: 20200126
  3. BEOVU [Suspect]
     Active Substance: BROLUCIZUMAB-DBLL
     Dosage: UNK (LOADING DOSE, LEFT EYE, OS)
     Route: 065
     Dates: start: 20200226

REACTIONS (1)
  - Chorioretinitis [Recovered/Resolved]

NARRATIVE: CASE EVENT DATE: 20200218
